FAERS Safety Report 20562276 (Version 1)
Quarter: 2022Q1

REPORT INFORMATION
  Report Type: Report from Study
  Country: PL (occurrence: PL)
  Receive Date: 20220307
  Receipt Date: 20220307
  Transmission Date: 20220424
  Serious: Yes (Hospitalization, Other)
  Sender: FDA-Public Use
  Company Number: PL-CELGENE-POL-2016074192

PATIENT
  Sex: Female

DRUGS (19)
  1. OZANIMOD [Suspect]
     Active Substance: OZANIMOD
     Indication: Multiple sclerosis
     Dosage: NOT PROVIDED
     Route: 048
     Dates: start: 20160309, end: 20160710
  2. OZANIMOD [Suspect]
     Active Substance: OZANIMOD
     Dosage: NOT PROVIDED
     Route: 048
     Dates: start: 20160718, end: 20160721
  3. CETIRIZINE HYDROCHLORIDE [Concomitant]
     Active Substance: CETIRIZINE HYDROCHLORIDE
     Indication: Pruritus
     Dosage: 1
     Route: 048
     Dates: start: 20160515
  4. FLUDROCORTISONE [Concomitant]
     Active Substance: FLUDROCORTISONE
     Indication: Conjunctivitis
     Dosage: 2
     Route: 047
     Dates: start: 20160603
  5. D-VITRUM [Concomitant]
     Indication: Supplementation therapy
     Dosage: 2000
     Route: 048
     Dates: start: 20160309, end: 20160709
  6. ESOMEPRAZOLE MAGNESIUM [Concomitant]
     Active Substance: ESOMEPRAZOLE MAGNESIUM
     Indication: Dyspepsia
     Dosage: 20
     Route: 048
     Dates: end: 20160709
  7. FAXOLET [Concomitant]
     Indication: Depression
     Dosage: 150
     Route: 048
     Dates: end: 20160709
  8. FAXOLET [Concomitant]
     Dosage: 150
     Route: 048
     Dates: start: 20160717, end: 20160904
  9. FLUPENTIXOL [Concomitant]
     Active Substance: FLUPENTIXOL
     Indication: Depression
     Dosage: 1.5
     Route: 048
  10. MIANSERIN HYDROCHLORIDE [Concomitant]
     Active Substance: MIANSERIN HYDROCHLORIDE
     Indication: Depression
     Dosage: 10
     Route: 048
  11. MAGNE B6 [Concomitant]
     Active Substance: MAGNESIUM\PYRIDOXINE
     Indication: Supplementation therapy
     Dosage: 1
     Route: 048
     Dates: start: 20160309, end: 20160709
  12. OFTAHIST [Concomitant]
     Indication: Conjunctivitis
     Dosage: 6
     Route: 047
     Dates: start: 20160603
  13. SULPIRIDE [Concomitant]
     Active Substance: SULPIRIDE
     Indication: Depression
     Dosage: 100
     Route: 048
     Dates: start: 20160506, end: 20160709
  14. TRITICCO [Concomitant]
     Indication: Depression
     Dosage: 50
     Route: 048
     Dates: start: 20160506, end: 20160709
  15. VITREOLENT [Concomitant]
     Indication: Cataract
     Dosage: 3
     Route: 047
     Dates: start: 20160603, end: 20160709
  16. VITREOLENT [Concomitant]
     Route: 047
     Dates: start: 20160717, end: 20160904
  17. METAMIZOLE MAGNESIUM [Concomitant]
     Active Substance: METAMIZOLE MAGNESIUM
     Indication: Abdominal pain upper
     Dosage: 2.5G/5ML
     Route: 041
     Dates: start: 20160710, end: 20160717
  18. Gardimax medica [Concomitant]
     Indication: Oropharyngeal pain
     Dosage: NOT PROVIDED
     Route: 060
  19. PANTOPRAZOLE SODIUM [Concomitant]
     Active Substance: PANTOPRAZOLE SODIUM
     Indication: Prophylaxis against gastrointestinal ulcer
     Dosage: 40
     Route: 048
     Dates: start: 20160717

REACTIONS (1)
  - Pancreatic carcinoma metastatic [Not Recovered/Not Resolved]

NARRATIVE: CASE EVENT DATE: 20160710
